FAERS Safety Report 8328972 (Version 4)
Quarter: 2012Q4

REPORT INFORMATION
  Report Type: 
  Country: CA (occurrence: CA)
  Receive Date: 20120110
  Receipt Date: 20121024
  Transmission Date: 20130627
  Serious: Yes (Other)
  Sender: FDA-Public Use
  Company Number: CA-ROCHE-1028735

PATIENT
  Age: 42 Year
  Sex: Female
  Weight: 96.11 kg

DRUGS (7)
  1. XOLAIR [Suspect]
     Indication: ASTHMA
     Route: 058
     Dates: start: 20100219
  2. XOLAIR [Suspect]
     Route: 058
     Dates: start: 20100305
  3. XOLAIR [Suspect]
     Route: 058
     Dates: start: 20100318, end: 20100908
  4. XOLAIR [Suspect]
     Route: 065
     Dates: start: 20120726
  5. SINGULAIR [Concomitant]
     Route: 065
  6. VENTOLIN [Concomitant]
     Route: 065
  7. ADVAIR [Concomitant]
     Route: 065

REACTIONS (8)
  - Rash generalised [Recovered/Resolved]
  - Lower respiratory tract infection [Unknown]
  - Hypersensitivity [Unknown]
  - Weight decreased [Unknown]
  - Influenza [Unknown]
  - Urinary tract infection [Unknown]
  - Urticaria [Recovered/Resolved]
  - Injection site pain [Unknown]
